FAERS Safety Report 24735804 (Version 1)
Quarter: 2024Q4

REPORT INFORMATION
  Report Type: Spontaneous
  Country: TR (occurrence: TR)
  Receive Date: 20241216
  Receipt Date: 20241216
  Transmission Date: 20250114
  Serious: Yes (Hospitalization, Other)
  Sender: NOVO NORDISK
  Company Number: TR-NOVOPROD-1333114

PATIENT
  Sex: Female

DRUGS (5)
  1. LERCADIP [LERCANIDIPINE] [Concomitant]
     Dosage: 20 MG, QD
  2. JANUVIA [Concomitant]
     Active Substance: SITAGLIPTIN PHOSPHATE
     Dosage: 100 MG, QD
  3. MODET [Concomitant]
     Dosage: 500 MG, QD
  4. RYZODEG 70/30 [Suspect]
     Active Substance: INSULIN ASPART\INSULIN DEGLUDEC
     Indication: Product used for unknown indication
     Dosage: 40 IU, BID
  5. DAPAGLIFLOZIN [Concomitant]
     Active Substance: DAPAGLIFLOZIN
     Dosage: 10 MG, QD

REACTIONS (3)
  - Lung disorder [Unknown]
  - Coronavirus infection [Unknown]
  - Cataract [Unknown]
